FAERS Safety Report 18857054 (Version 1)
Quarter: 2021Q1

REPORT INFORMATION
  Report Type: Spontaneous
  Country: BR (occurrence: BR)
  Receive Date: 20210208
  Receipt Date: 20210208
  Transmission Date: 20210420
  Serious: Yes (Other)
  Sender: FDA-Public Use
  Company Number: BR-ABBVIE-21K-020-3761272-00

PATIENT
  Age: 43 Year
  Sex: Female
  Weight: 85 kg

DRUGS (6)
  1. HUMIRA [Suspect]
     Active Substance: ADALIMUMAB
     Indication: ANKYLOSING SPONDYLITIS
     Route: 058
     Dates: start: 201807, end: 20210118
  2. VITAMIN D [Concomitant]
     Active Substance: VITAMIN D NOS
  3. VITAMIN D [Concomitant]
     Active Substance: VITAMIN D NOS
  4. MELOXICAM/CARISOPRODOL/FAMOTIDINE/TRAMADOL/AMITRIPTYLINE [Concomitant]
     Indication: INFECTION
     Dosage: 5MG + 200MG + 20MG + 50MG+15MG+5MG
     Route: 048
     Dates: start: 202006
  5. MELOXICAM/CARISOPRODOL/FAMOTIDINE/TRAMADOL [Concomitant]
     Indication: INFECTION
     Dosage: 5MG + 200MG + 20MG + 50MG, 1 CAPSULE IN THE MORNING
     Route: 048
     Dates: start: 202006
  6. VITAMIN D [Concomitant]
     Active Substance: VITAMIN D NOS
     Indication: VITAMIN SUPPLEMENTATION
     Route: 048

REACTIONS (15)
  - Osteoarthritis [Not Recovered/Not Resolved]
  - Joint swelling [Not Recovered/Not Resolved]
  - Gait disturbance [Not Recovered/Not Resolved]
  - Fibroadenoma of breast [Recovered/Resolved]
  - Vitamin D deficiency [Not Recovered/Not Resolved]
  - Pain [Not Recovered/Not Resolved]
  - Spinal cord compression [Not Recovered/Not Resolved]
  - Arthritis infective [Not Recovered/Not Resolved]
  - Fibroadenoma of breast [Not Recovered/Not Resolved]
  - Ankylosing spondylitis [Not Recovered/Not Resolved]
  - Drug ineffective [Unknown]
  - Exostosis [Not Recovered/Not Resolved]
  - Localised infection [Not Recovered/Not Resolved]
  - Bone erosion [Not Recovered/Not Resolved]
  - Blood creatinine abnormal [Not Recovered/Not Resolved]

NARRATIVE: CASE EVENT DATE: 2018
